FAERS Safety Report 6575056-0 (Version None)
Quarter: 2010Q1

REPORT INFORMATION
  Report Type: 
  Country: None (occurrence: None)
  Receive Date: 20100201
  Receipt Date: 20100120
  Transmission Date: 20100710
  Serious: Yes (Hospitalization)
  Sender: FDA-Public Use
  Company Number: PAR_03294_2009

PATIENT
  Age: 54 Year
  Sex: Female

DRUGS (3)
  1. IBUPROFEN [Suspect]
     Indication: BACK PAIN
     Dosage: DF
  2. ACETAMINOPHEN [Suspect]
     Indication: BACK PAIN
     Dosage: DF
  3. ANTIBIOTICS [Concomitant]

REACTIONS (7)
  - ASTHENIA [None]
  - DECREASED APPETITE [None]
  - NORMOCHROMIC NORMOCYTIC ANAEMIA [None]
  - OBSTRUCTIVE UROPATHY [None]
  - PYELONEPHRITIS [None]
  - RENAL FAILURE [None]
  - RENAL TUBULAR NECROSIS [None]
